FAERS Safety Report 14977187 (Version 2)
Quarter: 2018Q2

REPORT INFORMATION
  Report Type: Report from Study
  Country: GB (occurrence: GB)
  Receive Date: 20180606
  Receipt Date: 20180613
  Transmission Date: 20180711
  Serious: Yes (Hospitalization)
  Sender: FDA-Public Use
  Company Number: GB-ROCHE-2133302

PATIENT
  Age: 79 Year
  Sex: Male

DRUGS (10)
  1. NYSTATIN. [Concomitant]
     Active Substance: NYSTATIN
     Dosage: ORAL LIQUID
     Route: 048
     Dates: start: 20141208
  2. ACICLOVIR [Concomitant]
     Active Substance: ACYCLOVIR
     Dosage: 16 TABLETS
     Route: 048
     Dates: start: 20140924
  3. FERROUS FUMARATE [Concomitant]
     Active Substance: FERROUS FUMARATE
     Dosage: 16 TABLETS
     Route: 048
     Dates: start: 20141208
  4. CHLORHEXIDINE [Concomitant]
     Active Substance: CHLORHEXIDINE
     Route: 048
  5. COTRIMOXAZOLE [Concomitant]
     Active Substance: SULFAMETHOXAZOLE\TRIMETHOPRIM
     Dosage: 16 TABLETS
     Route: 048
     Dates: start: 20140321
  6. BRINZOLAMIDE [Concomitant]
     Active Substance: BRINZOLAMIDE
     Dosage: DOSE LAST GIVEN WAS 5 UNITS
     Route: 061
     Dates: start: 20170510
  7. APIXABAN [Concomitant]
     Active Substance: APIXABAN
     Indication: ATRIAL FIBRILLATION
     Dosage: DOSE OF LAST GIVEN WAS 2.5 MG: 16 TABLET
     Route: 048
     Dates: start: 20160509
  8. OBINUTUZUMAB. [Suspect]
     Active Substance: OBINUTUZUMAB
     Indication: CHRONIC LYMPHOCYTIC LEUKAEMIA
     Dosage: DATE OF LAST DOSE ADMINISTERED: 24/OCT/2016: 1000 MG
     Route: 042
     Dates: start: 20160523
  9. LANSOPRAZOLE. [Concomitant]
     Active Substance: LANSOPRAZOLE
     Indication: PROPHYLAXIS
     Route: 048
  10. BIMATOPROST/TIMOLOL MALEATE [Concomitant]
     Dosage: DOSE LAST GIVEN WAS 300 MCG, 5 MG
     Route: 065
     Dates: start: 20160212

REACTIONS (1)
  - Abdominal pain [Unknown]

NARRATIVE: CASE EVENT DATE: 20180530
